FAERS Safety Report 7385301-X (Version None)
Quarter: 2011Q1

REPORT INFORMATION
  Report Type: 
  Country: None (occurrence: None)
  Receive Date: 20110330
  Receipt Date: 20100521
  Transmission Date: 20110831
  Serious: No
  Sender: FDA-Public Use
  Company Number: US-MYLANLABS-2010S1009218

PATIENT
  Age: 62 Year
  Sex: Female

DRUGS (2)
  1. EMSAM [Suspect]
     Indication: DEPRESSION
     Dosage: Q24H
     Dates: start: 20100518
  2. CALCIUM [Suspect]

REACTIONS (2)
  - DRUG INTERACTION [None]
  - HEADACHE [None]
